FAERS Safety Report 4620025-0 (Version None)
Quarter: 2005Q1

REPORT INFORMATION
  Report Type: 
  Country: None (occurrence: None)
  Receive Date: 20050325
  Receipt Date: 20050325
  Transmission Date: 20050727
  Serious: Yes (Death, Hospitalization, Other)
  Sender: FDA-Public Use
  Company Number: None

PATIENT
  Age: 47 Year
  Sex: Male
  Weight: 86.1834 kg

DRUGS (4)
  1. SOLU-MEDROL [Suspect]
     Indication: SEPTIC SHOCK
     Dosage: 500 MG IV
     Route: 042
     Dates: start: 20050101, end: 20050201
  2. IMMUNE GLOBULIN INTRAVENOUS (HUMAN) [Suspect]
     Indication: COMA
     Dates: start: 20040923, end: 20040924
  3. IMMUNE GLOBULIN INTRAVENOUS (HUMAN) [Suspect]
     Indication: SEPSIS
     Dates: start: 20040923, end: 20040924
  4. BLOOD PLASMA PHARESIS [Concomitant]

REACTIONS (7)
  - IMMUNOSUPPRESSION [None]
  - OEDEMA [None]
  - OVERDOSE [None]
  - POOR PERIPHERAL CIRCULATION [None]
  - RENAL FAILURE ACUTE [None]
  - RESPIRATORY DISTRESS [None]
  - TACHYCARDIA [None]
